FAERS Safety Report 9125299 (Version 1)
Quarter: 2013Q1

REPORT INFORMATION
  Report Type: Spontaneous
  Country: ZA (occurrence: ZA)
  Receive Date: 20130227
  Receipt Date: 20130227
  Transmission Date: 20140127
  Serious: Yes (Death, Hospitalization)
  Sender: FDA-Public Use
  Company Number: ZA-WATSON-2013-03089

PATIENT
  Sex: 0

DRUGS (4)
  1. SULFAMETHOXAZOLE-TRIMETHOPRIM [Suspect]
     Indication: ISOSPORIASIS
     Dosage: 960 MG, BID
     Route: 065
  2. STAVUDINE [Concomitant]
     Indication: HIV INFECTION
     Dosage: UNK, UNKNOWN
     Route: 065
  3. LAMIVUDINE [Concomitant]
     Indication: HIV INFECTION
     Dosage: UNK, UNKNOWN
     Route: 065
  4. EFAVIRENZ [Suspect]
     Indication: HIV INFECTION
     Dosage: UNK, UNKNOWN
     Route: 065

REACTIONS (2)
  - Pathogen resistance [Fatal]
  - Drug ineffective [Fatal]
